FAERS Safety Report 6814540-9 (Version None)
Quarter: 2010Q3

REPORT INFORMATION
  Report Type: 
  Country: None (occurrence: None)
  Receive Date: 20100702
  Receipt Date: 20100624
  Transmission Date: 20110219
  Serious: Yes (Hospitalization)
  Sender: FDA-Public Use
  Company Number: FR-JNJFOC-20100510962

PATIENT
  Sex: Male
  Weight: 75 kg

DRUGS (6)
  1. RISPERDAL CONSTA [Suspect]
     Indication: SCHIZOPHRENIA
     Route: 030
  2. RISPERDAL CONSTA [Suspect]
     Route: 030
  3. RISPERDAL [Suspect]
     Indication: PRODUCT USED FOR UNKNOWN INDICATION
     Route: 048
  4. RISPERDAL [Suspect]
     Route: 048
  5. RISPERDAL [Suspect]
     Route: 048
  6. TERCIAN [Concomitant]
     Indication: SCHIZOPHRENIA
     Route: 048

REACTIONS (5)
  - DRUG INEFFECTIVE [None]
  - MALAISE [None]
  - OVERDOSE [None]
  - PHLEBITIS [None]
  - SEDATION [None]
